FAERS Safety Report 11400548 (Version 2)
Quarter: 2015Q3

REPORT INFORMATION
  Report Type: Spontaneous
  Country: GB (occurrence: GB)
  Receive Date: 20150820
  Receipt Date: 20150827
  Transmission Date: 20151125
  Serious: Yes (Hospitalization)
  Sender: FDA-Public Use
  Company Number: GB-PFIZER INC-2015275826

PATIENT
  Age: 44 Year
  Sex: Female

DRUGS (5)
  1. FLUCLOXACILLIN [Concomitant]
     Active Substance: FLUCLOXACILLIN
     Indication: CANDIDA INFECTION
     Dosage: UNK
     Route: 048
  2. CANESTEN [Suspect]
     Active Substance: CLOTRIMAZOLE
     Indication: CANDIDA INFECTION
     Dosage: UNK
     Route: 061
  3. FLUCONAZOLE. [Suspect]
     Active Substance: FLUCONAZOLE
     Indication: CANDIDA INFECTION
     Dosage: UNK
     Route: 048
  4. METHYLCHLOROISOTHIAZOLINONE. [Suspect]
     Active Substance: METHYLCHLOROISOTHIAZOLINONE
     Indication: RASH PRURITIC
     Dosage: UNK
  5. METHYLISOTHIAZOLINONE [Suspect]
     Active Substance: METHYLISOTHIAZOLINONE
     Indication: RASH PRURITIC
     Dosage: UNK

REACTIONS (1)
  - Dermatitis allergic [Unknown]
